FAERS Safety Report 11140159 (Version 1)
Quarter: 2015Q2

REPORT INFORMATION
  Report Type: Spontaneous
  Country: US (occurrence: None)
  Receive Date: 20150522
  Receipt Date: 20150522
  Transmission Date: 20150821
  Serious: Yes (Other)
  Sender: FDA-Public Use
  Company Number: 001915139A

PATIENT
  Age: 13 Year
  Sex: Female

DRUGS (6)
  1. PROACTIV PLUS COMPLEXION PERFECTING HYDRATOR [Suspect]
     Active Substance: SALICYLIC ACID
     Indication: ACNE
     Dosage: DERMAL QD
     Route: 061
     Dates: start: 20150413, end: 20150416
  2. PROACTIV PLUS CLEANSING BODY BAR [Suspect]
     Active Substance: SALICYLIC ACID
     Indication: ACNE
     Dosage: DERMAL QD
     Route: 061
     Dates: start: 20150413, end: 20150416
  3. PROACTIVPLUS SKIN SMOOTHING EXFOLIATOR [Suspect]
     Active Substance: BENZOYL PEROXIDE
     Indication: ACNE
     Dosage: DERMAL QD
     Route: 061
     Dates: start: 20150413, end: 20150416
  4. PROACTIV PLUS PORE TARGETING TREATMENT [Suspect]
     Active Substance: BENZOYL PEROXIDE
     Indication: ACNE
     Dosage: DERMAL QD
     Route: 061
     Dates: start: 20150413, end: 20150416
  5. PROACTIV PLUS EMERGENCY BLEMISH RELIEF [Suspect]
     Active Substance: BENZOYL PEROXIDE
     Indication: ACNE
     Dosage: DERMAL QD
     Route: 061
     Dates: start: 20150413, end: 20150416
  6. PROACTIV PLUS SKIN PURIFYING MASK [Suspect]
     Active Substance: SULFUR
     Indication: ACNE
     Dosage: DERMAL QD
     Route: 061
     Dates: start: 20150413, end: 20150416

REACTIONS (1)
  - Urticaria [None]

NARRATIVE: CASE EVENT DATE: 20150416
